FAERS Safety Report 20951407 (Version 1)
Quarter: 2022Q2

REPORT INFORMATION
  Report Type: Spontaneous
  Country: US (occurrence: US)
  Receive Date: 20220613
  Receipt Date: 20220613
  Transmission Date: 20220721
  Serious: Yes (Other)
  Sender: FDA-Public Use
  Company Number: US-SANOFI-01137015

PATIENT
  Sex: Female

DRUGS (1)
  1. SOLIQUA 100/33 [Suspect]
     Active Substance: INSULIN GLARGINE\LIXISENATIDE
     Indication: Diabetes mellitus
     Dosage: UNK

REACTIONS (5)
  - Cataract [Unknown]
  - Cerebrovascular accident [Unknown]
  - Amnesia [Unknown]
  - Visual impairment [Unknown]
  - Product dose omission issue [Unknown]
